FAERS Safety Report 7278299-6 (Version None)
Quarter: 2011Q1

REPORT INFORMATION
  Report Type: 
  Country: None (occurrence: None)
  Receive Date: 20110202
  Receipt Date: 20110202
  Transmission Date: 20110831
  Serious: Yes (Hospitalization)
  Sender: FDA-Public Use
  Company Number: None

PATIENT

DRUGS (2)
  1. ENTACAPONE [Suspect]
     Indication: PARKINSON'S DISEASE
  2. SINEMET [Suspect]

REACTIONS (2)
  - CONFUSIONAL STATE [None]
  - SYNCOPE [None]
